FAERS Safety Report 14569600 (Version 1)
Quarter: 2018Q1

REPORT INFORMATION
  Report Type: Spontaneous
  Country: US (occurrence: US)
  Receive Date: 20180224
  Receipt Date: 20180224
  Transmission Date: 20180509
  Serious: Yes (Other)
  Sender: FDA-Public Use
  Company Number: US-TEVA-2018-US-862020

PATIENT
  Sex: Female

DRUGS (2)
  1. CARVEDILOL. [Suspect]
     Active Substance: CARVEDILOL
     Route: 065
  2. METOPROLOL. [Suspect]
     Active Substance: METOPROLOL
     Indication: HYPERTENSION
     Dosage: 50 MILLIGRAM DAILY;
     Route: 065

REACTIONS (3)
  - Heart rate decreased [Unknown]
  - Myelodysplastic syndrome [Unknown]
  - Condition aggravated [Unknown]
